FAERS Safety Report 25643695 (Version 1)
Quarter: 2025Q3

REPORT INFORMATION
  Report Type: Report from Study
  Country: US (occurrence: US)
  Receive Date: 20250805
  Receipt Date: 20250805
  Transmission Date: 20251021
  Serious: No
  Sender: SUNOVION
  Company Number: US-SUMITOMO PHARMA SWITZERLAND GMBH-2025SPA009854

PATIENT
  Age: 66 Year
  Sex: Male

DRUGS (36)
  1. ORGOVYX [Suspect]
     Active Substance: RELUGOLIX
     Indication: Prostate cancer
     Route: 048
  2. ACETAMINOPHEN AND CODEINE [Concomitant]
     Active Substance: ACETAMINOPHEN\CODEINE PHOSPHATE
  3. ALPRAZOLAM [Concomitant]
     Active Substance: ALPRAZOLAM
  4. AMLODIPINE [Concomitant]
     Active Substance: AMLODIPINE BESYLATE
  5. AMOXICILLIN [Concomitant]
     Active Substance: AMOXICILLIN
  6. ATORVASTATIN [Concomitant]
     Active Substance: ATORVASTATIN
  7. CAMCEVI [Concomitant]
     Active Substance: LEUPROLIDE MESYLATE
  8. CEFDINIR [Concomitant]
     Active Substance: CEFDINIR
  9. CEPHALEXIN [Concomitant]
     Active Substance: CEPHALEXIN
  10. CIALIS [Concomitant]
     Active Substance: TADALAFIL
  11. CITALOPRAM [Concomitant]
     Active Substance: CITALOPRAM
  12. CLOBETASOL [Concomitant]
     Active Substance: CLOBETASOL
  13. CLOPIDOGREL [Concomitant]
     Active Substance: CLOPIDOGREL BISULFATE
  14. DICYCLOMINE [Concomitant]
     Active Substance: DICYCLOMINE HYDROCHLORIDE
  15. DOXYCYCLINE [Concomitant]
     Active Substance: DOXYCYCLINE
  16. Dulcolax [Concomitant]
  17. ESCITALOPRAM [Concomitant]
     Active Substance: ESCITALOPRAM OXALATE
  18. FUROSEMIDE [Concomitant]
     Active Substance: FUROSEMIDE
  19. GABAPENTIN [Concomitant]
     Active Substance: GABAPENTIN
  20. HYDROCHLOROTHIAZIDE [Concomitant]
     Active Substance: HYDROCHLOROTHIAZIDE
  21. NORCO [Concomitant]
     Active Substance: ACETAMINOPHEN\HYDROCODONE BITARTRATE
  22. HYDROXYZINE [Concomitant]
     Active Substance: HYDROXYZINE HYDROCHLORIDE
  23. LEXAPRO [Concomitant]
     Active Substance: ESCITALOPRAM OXALATE
  24. LISINOPRIL [Concomitant]
     Active Substance: LISINOPRIL
  25. LOMOTIL [Concomitant]
     Active Substance: ATROPINE SULFATE\DIPHENOXYLATE HYDROCHLORIDE
  26. LOSARTAN [Concomitant]
     Active Substance: LOSARTAN
  27. LUPRON [Concomitant]
     Active Substance: LEUPROLIDE ACETATE
  28. METOPROLOL SUCCINATE [Concomitant]
     Active Substance: METOPROLOL SUCCINATE
  29. MIRTAZAPINE [Concomitant]
     Active Substance: MIRTAZAPINE
  30. PERCOCET [Concomitant]
     Active Substance: ACETAMINOPHEN\OXYCODONE HYDROCHLORIDE
  31. PANTOPRAZOLE [Concomitant]
     Active Substance: PANTOPRAZOLE
  32. PHENAZOPYRIDINE [Concomitant]
     Active Substance: PHENAZOPYRIDINE
  33. PREGABALIN [Concomitant]
     Active Substance: PREGABALIN
  34. UNSPECIFIED INGREDIENT [Concomitant]
     Active Substance: UNSPECIFIED INGREDIENT
  35. TAMSULOSIN [Concomitant]
     Active Substance: TAMSULOSIN
  36. XTANDI [Concomitant]
     Active Substance: ENZALUTAMIDE

REACTIONS (1)
  - Diarrhoea [Unknown]
